FAERS Safety Report 10068189 (Version 2)
Quarter: 2014Q2

REPORT INFORMATION
  Report Type: Spontaneous
  Country: US (occurrence: US)
  Receive Date: 20140409
  Receipt Date: 20140506
  Transmission Date: 20141212
  Serious: Yes (Death, Hospitalization)
  Sender: FDA-Public Use
  Company Number: US-BAXTER-2014BAX016896

PATIENT
  Sex: Female

DRUGS (2)
  1. DIANEAL LOW CALCIUM [Suspect]
     Indication: PERITONEAL DIALYSIS
     Route: 033
     Dates: start: 20130522, end: 20140316
  2. DIANEAL LOW CALCIUM [Suspect]
     Indication: RENAL FAILURE CHRONIC

REACTIONS (7)
  - Multi-organ failure [Fatal]
  - Metabolic acidosis [Fatal]
  - Blood pressure immeasurable [Unknown]
  - Pulse absent [Unknown]
  - Unresponsive to stimuli [Unknown]
  - Balance disorder [Unknown]
  - Fall [Unknown]
